FAERS Safety Report 8961227 (Version 2)
Quarter: 2013Q1

REPORT INFORMATION
  Report Type: Spontaneous
  Country: DE (occurrence: DE)
  Receive Date: 20121212
  Receipt Date: 20130322
  Transmission Date: 20140127
  Serious: Yes (Other)
  Sender: FDA-Public Use
  Company Number: DE-JNJFOC-20121204877

PATIENT
  Age: 81 Year
  Sex: Male
  Weight: 105 kg

DRUGS (13)
  1. XARELTO [Suspect]
     Indication: ATRIAL FIBRILLATION
     Route: 048
     Dates: start: 20121024, end: 20121128
  2. XARELTO [Suspect]
     Indication: ANGINA PECTORIS
     Route: 048
     Dates: start: 20121024, end: 20121128
  3. LOCOL [Concomitant]
     Indication: PRODUCT USED FOR UNKNOWN INDICATION
     Route: 065
     Dates: start: 20121102
  4. HCT [Concomitant]
     Route: 065
     Dates: start: 20121102
  5. AMLODIPINE [Concomitant]
     Route: 065
     Dates: start: 201211
  6. RAMIPRIL [Concomitant]
     Route: 065
     Dates: start: 20121102
  7. TOREM [Concomitant]
     Route: 065
     Dates: start: 200904
  8. CARVEDILOL [Concomitant]
     Route: 065
     Dates: start: 201208
  9. ALLOPURINOL [Concomitant]
     Route: 065
  10. PANTOZOL [Concomitant]
     Route: 065
     Dates: start: 201208
  11. AMIODARON [Concomitant]
     Route: 065
  12. AMIODARON [Concomitant]
     Route: 065
     Dates: start: 20121024, end: 20121120
  13. CALCIUM CARBONATE [Concomitant]
     Dosage: 25 UNSPECIFIED UNITS
     Route: 065
     Dates: start: 201211

REACTIONS (1)
  - Blood creatinine increased [Unknown]
